FAERS Safety Report 7874056-8 (Version None)
Quarter: 2011Q4

REPORT INFORMATION
  Report Type: 
  Country: None (occurrence: None)
  Receive Date: 20111030
  Receipt Date: 20110513
  Transmission Date: 20120403
  Serious: No
  Sender: FDA-Public Use
  Company Number: US-AMGEN-USASP2011024937

PATIENT
  Age: 47 Year
  Sex: Female
  Weight: 145.13 kg

DRUGS (6)
  1. TRIAMTERENE AND HYDROCHLOROTHIAZIDE [Concomitant]
     Dosage: UNK
     Route: 048
  2. TYLENOL (CAPLET) [Concomitant]
     Dosage: 500 MG, UNK
     Route: 048
  3. LEVOXYL [Concomitant]
     Dosage: 25 MUG, UNK
     Route: 048
  4. PREDNISONE [Concomitant]
     Dosage: 1 MG, UNK
     Route: 048
  5. ENBREL [Suspect]
     Indication: PRODUCT USED FOR UNKNOWN INDICATION
     Dosage: 50 MG, QWK
     Route: 058
  6. LEFLUNOMIDE [Concomitant]
     Dosage: 10 MG, UNK
     Route: 048

REACTIONS (3)
  - INJECTION SITE PRURITUS [None]
  - INJECTION SITE HAEMATOMA [None]
  - INJECTION SITE ERYTHEMA [None]
